FAERS Safety Report 10703897 (Version 2)
Quarter: 2015Q1

REPORT INFORMATION
  Report Type: Spontaneous
  Country: JP (occurrence: JP)
  Receive Date: 20150112
  Receipt Date: 20150114
  Transmission Date: 20150721
  Serious: Yes (Death)
  Sender: FDA-Public Use
  Company Number: JP-ROCHE-1519819

PATIENT
  Age: 44 Year
  Sex: Male

DRUGS (3)
  1. 5-FU [Concomitant]
     Active Substance: FLUOROURACIL
  2. PACLITAXEL. [Concomitant]
     Active Substance: PACLITAXEL
     Route: 033
  3. XELODA [Suspect]
     Active Substance: CAPECITABINE
     Indication: GASTRIC CANCER
     Dosage: 2 WEEK PRESCRIPTION AND 1 WEEK NON-PRESCRIPTION
     Route: 048

REACTIONS (2)
  - Diarrhoea [Unknown]
  - Disease progression [Fatal]
